FAERS Safety Report 20654535 (Version 2)
Quarter: 2022Q2

REPORT INFORMATION
  Report Type: Spontaneous
  Country: CN (occurrence: None)
  Receive Date: 20220330
  Receipt Date: 20220630
  Transmission Date: 20220721
  Serious: Yes (Other)
  Sender: FDA-Public Use
  Company Number: 2022A097057

PATIENT
  Age: 8 Year
  Sex: Male
  Weight: 33 kg

DRUGS (2)
  1. SYMBICORT [Suspect]
     Active Substance: BUDESONIDE\FORMOTEROL FUMARATE DIHYDRATE
     Indication: Asthma
     Dosage: 80 MCG/INHAL, EVERY 12 HOURS 80/4.5?G/D.
     Route: 055
     Dates: start: 20220116, end: 20220226
  2. SYMBICORT [Suspect]
     Active Substance: BUDESONIDE\FORMOTEROL FUMARATE DIHYDRATE
     Indication: Asthma
     Dosage: UNKNOWN FREQUENCY UNKNOWN
     Route: 055

REACTIONS (7)
  - Asthma [Not Recovered/Not Resolved]
  - Infection [Unknown]
  - Impaired quality of life [Unknown]
  - Pharyngitis [Unknown]
  - Pharyngeal injury [Unknown]
  - Product packaging quantity issue [Unknown]
  - Device issue [Unknown]
